FAERS Safety Report 4759344-6 (Version None)
Quarter: 2005Q3

REPORT INFORMATION
  Report Type: 
  Country: None (occurrence: None)
  Receive Date: 20050831
  Receipt Date: 20050818
  Transmission Date: 20060218
  Serious: Yes (Hospitalization)
  Sender: FDA-Public Use
  Company Number: 2005117970

PATIENT
  Sex: Male

DRUGS (1)
  1. VIAGRA [Suspect]
     Indication: ERECTILE DYSFUNCTION
     Dosage: 25 MG, AS NECESSARY, ORAL
     Route: 048

REACTIONS (3)
  - HEADACHE [None]
  - RETINAL DETACHMENT [None]
  - VISUAL DISTURBANCE [None]
